FAERS Safety Report 26114852 (Version 1)
Quarter: 2025Q4

REPORT INFORMATION
  Report Type: Spontaneous
  Country: JP (occurrence: JP)
  Receive Date: 20251203
  Receipt Date: 20251203
  Transmission Date: 20260118
  Serious: Yes (Other)
  Sender: AJANTA PHARMA USA INC
  Company Number: JP-AJANTA-2025AJA00162

PATIENT
  Age: 50 Year
  Sex: Female

DRUGS (51)
  1. TOFACITINIB [Suspect]
     Active Substance: TOFACITINIB
     Indication: Scleritis
  2. TOFACITINIB [Suspect]
     Active Substance: TOFACITINIB
     Indication: Antineutrophil cytoplasmic antibody positive
  3. TOFACITINIB [Suspect]
     Active Substance: TOFACITINIB
  4. TOFACITINIB [Suspect]
     Active Substance: TOFACITINIB
  5. TOFACITINIB [Suspect]
     Active Substance: TOFACITINIB
  6. TOFACITINIB [Suspect]
     Active Substance: TOFACITINIB
  7. METHOTREXATE [Concomitant]
     Active Substance: METHOTREXATE
     Indication: Rheumatoid arthritis
  8. METHOTREXATE [Concomitant]
     Active Substance: METHOTREXATE
  9. METHOTREXATE [Concomitant]
     Active Substance: METHOTREXATE
  10. METHOTREXATE [Concomitant]
     Active Substance: METHOTREXATE
  11. METHOTREXATE [Concomitant]
     Active Substance: METHOTREXATE
  12. PREDNISOLONE [Concomitant]
     Active Substance: PREDNISOLONE
     Indication: Colitis ulcerative
     Route: 048
  13. PREDNISOLONE [Concomitant]
     Active Substance: PREDNISOLONE
     Route: 048
  14. PREDNISOLONE [Concomitant]
     Active Substance: PREDNISOLONE
     Route: 048
  15. PREDNISOLONE [Concomitant]
     Active Substance: PREDNISOLONE
     Route: 048
  16. PREDNISOLONE [Concomitant]
     Active Substance: PREDNISOLONE
     Route: 048
  17. PREDNISOLONE [Concomitant]
     Active Substance: PREDNISOLONE
     Route: 048
  18. PREDNISOLONE [Concomitant]
     Active Substance: PREDNISOLONE
     Route: 048
  19. PREDNISOLONE [Concomitant]
     Active Substance: PREDNISOLONE
     Route: 048
  20. PREDNISOLONE [Concomitant]
     Active Substance: PREDNISOLONE
     Route: 048
  21. PREDNISOLONE [Concomitant]
     Active Substance: PREDNISOLONE
     Route: 048
  22. PREDNISOLONE [Concomitant]
     Active Substance: PREDNISOLONE
     Route: 048
  23. PREDNISOLONE [Concomitant]
     Active Substance: PREDNISOLONE
     Route: 048
  24. PREDNISOLONE [Concomitant]
     Active Substance: PREDNISOLONE
     Route: 048
  25. PREDNISOLONE [Concomitant]
     Active Substance: PREDNISOLONE
     Route: 048
  26. PREDNISOLONE [Concomitant]
     Active Substance: PREDNISOLONE
     Route: 048
  27. PREDNISOLONE [Concomitant]
     Active Substance: PREDNISOLONE
     Route: 048
  28. PREDNISOLONE [Concomitant]
     Active Substance: PREDNISOLONE
     Route: 048
  29. PREDNISOLONE [Concomitant]
     Active Substance: PREDNISOLONE
     Route: 048
  30. PREDNISOLONE [Concomitant]
     Active Substance: PREDNISOLONE
     Route: 048
  31. PREDNISOLONE [Concomitant]
     Active Substance: PREDNISOLONE
     Route: 048
  32. PREDNISOLONE [Concomitant]
     Active Substance: PREDNISOLONE
     Route: 048
  33. PREDNISOLONE [Concomitant]
     Active Substance: PREDNISOLONE
     Route: 048
  34. PREDNISOLONE [Concomitant]
     Active Substance: PREDNISOLONE
     Route: 048
  35. PREDNISOLONE [Concomitant]
     Active Substance: PREDNISOLONE
     Route: 048
  36. INFLIXIMAB [Concomitant]
     Active Substance: INFLIXIMAB
  37. INFLIXIMAB [Concomitant]
     Active Substance: INFLIXIMAB
  38. DEXAMETHASONE [Concomitant]
     Active Substance: DEXAMETHASONE
     Route: 061
  39. DEXAMETHASONE [Concomitant]
     Active Substance: DEXAMETHASONE
     Route: 061
  40. DEXAMETHASONE [Concomitant]
     Active Substance: DEXAMETHASONE
     Route: 061
  41. DEXAMETHASONE [Concomitant]
     Active Substance: DEXAMETHASONE
     Route: 061
  42. DEXAMETHASONE [Concomitant]
     Active Substance: DEXAMETHASONE
     Route: 061
  43. DEXAMETHASONE [Concomitant]
     Active Substance: DEXAMETHASONE
     Route: 061
  44. DEXAMETHASONE [Concomitant]
     Active Substance: DEXAMETHASONE
     Route: 061
  45. DEXAMETHASONE [Concomitant]
     Active Substance: DEXAMETHASONE
     Route: 061
  46. PREDNISOLONE ACETATE [Concomitant]
     Active Substance: PREDNISOLONE ACETATE
     Route: 061
  47. PREDNISOLONE ACETATE [Concomitant]
     Active Substance: PREDNISOLONE ACETATE
     Route: 061
  48. PREDNISOLONE ACETATE [Concomitant]
     Active Substance: PREDNISOLONE ACETATE
     Route: 061
  49. PREDNISOLONE ACETATE [Concomitant]
     Active Substance: PREDNISOLONE ACETATE
     Route: 061
  50. PREDNISOLONE ACETATE [Concomitant]
     Active Substance: PREDNISOLONE ACETATE
     Route: 061
  51. PREDNISOLONE ACETATE [Concomitant]
     Active Substance: PREDNISOLONE ACETATE
     Route: 061

REACTIONS (1)
  - Prinzmetal angina [Recovered/Resolved]
